FAERS Safety Report 4475295-9 (Version None)
Quarter: 2004Q4

REPORT INFORMATION
  Report Type: 
  Country: None (occurrence: None)
  Receive Date: 20041012
  Receipt Date: 20040928
  Transmission Date: 20050328
  Serious: Yes (Other)
  Sender: FDA-Public Use
  Company Number: 2004233498US

PATIENT
  Age: 60 Year
  Sex: Female
  Weight: 59.9 kg

DRUGS (1)
  1. ESTRING [Suspect]
     Dates: start: 20010101, end: 20040101

REACTIONS (10)
  - CHEMICAL INJURY [None]
  - DRUG INEFFECTIVE [None]
  - DRUG WITHDRAWAL SYNDROME [None]
  - GENITAL PRURITUS FEMALE [None]
  - INFLAMMATION [None]
  - SUICIDAL IDEATION [None]
  - VAGINAL BURNING SENSATION [None]
  - VAGINAL MYCOSIS [None]
  - VAGINITIS [None]
  - VAGINITIS BACTERIAL [None]
